FAERS Safety Report 5871284-8 (Version None)
Quarter: 2008Q3

REPORT INFORMATION
  Report Type: 
  Country: None (occurrence: None)
  Receive Date: 20080902
  Receipt Date: 20080818
  Transmission Date: 20090109
  Serious: Yes (Other)
  Sender: FDA-Public Use
  Company Number: MY-1167061

PATIENT
  Age: 2 Month
  Sex: Male

DRUGS (1)
  1. CYCLOMYDRIL [Suspect]
     Indication: OPHTHALMOLOGICAL EXAMINATION
     Dosage: 1 GTT OU, OPTHALMIC
     Route: 047
     Dates: start: 20080416, end: 20080416

REACTIONS (2)
  - CYANOSIS [None]
  - OXYGEN SATURATION DECREASED [None]
